FAERS Safety Report 25941368 (Version 1)
Quarter: 2025Q4

REPORT INFORMATION
  Report Type: Spontaneous
  Country: US (occurrence: None)
  Receive Date: 20251020
  Receipt Date: 20251020
  Transmission Date: 20260119
  Serious: Yes (Hospitalization)
  Sender: FDA-CTU
  Company Number: None

PATIENT
  Age: 71 Year
  Sex: Male

DRUGS (1)
  1. ENBREL [Suspect]
     Active Substance: ETANERCEPT
     Dosage: 50MG QWK ?

REACTIONS (6)
  - Pneumonia [None]
  - Chronic obstructive pulmonary disease [None]
  - Atrial fibrillation [None]
  - Bronchitis [None]
  - Emphysema [None]
  - Therapy interrupted [None]
